FAERS Safety Report 17010301 (Version 3)
Quarter: 2020Q1

REPORT INFORMATION
  Report Type: Spontaneous
  Country: US (occurrence: US)
  Receive Date: 20191108
  Receipt Date: 20200320
  Transmission Date: 20200409
  Serious: Yes (Other)
  Sender: FDA-Public Use
  Company Number: US-PFIZER INC-2019485315

PATIENT
  Age: 62 Year
  Sex: Female

DRUGS (1)
  1. XELJANZ [Suspect]
     Active Substance: TOFACITINIB CITRATE
     Dosage: 5 MG, UNK
     Dates: start: 201908

REACTIONS (6)
  - Osteoarthritis [Unknown]
  - Pain [Unknown]
  - Upper limb fracture [Unknown]
  - Anxiety [Unknown]
  - Fall [Unknown]
  - Plantar fasciitis [Unknown]
